FAERS Safety Report 22595361 (Version 1)
Quarter: 2023Q2

REPORT INFORMATION
  Report Type: Spontaneous
  Country: US (occurrence: US)
  Receive Date: 20230613
  Receipt Date: 20230613
  Transmission Date: 20230722
  Serious: Yes (Other)
  Sender: FDA-Public Use
  Company Number: US-XERIS PHARMACEUTICALS-2023XER01934

PATIENT
  Sex: Female

DRUGS (1)
  1. RECORLEV [Suspect]
     Active Substance: LEVOKETOCONAZOLE
     Indication: Cushing^s syndrome
     Dosage: 1 TABLET (150 MG), 2X/DAY
     Route: 048

REACTIONS (7)
  - Loss of consciousness [Unknown]
  - Road traffic accident [Unknown]
  - Nausea [Unknown]
  - Vomiting [Unknown]
  - Muscular weakness [Unknown]
  - Headache [Unknown]
  - Blood pressure increased [Unknown]
